FAERS Safety Report 8322825-2 (Version None)
Quarter: 2012Q2

REPORT INFORMATION
  Report Type: 
  Country: None (occurrence: None)
  Receive Date: 20120430
  Receipt Date: 20120423
  Transmission Date: 20120825
  Serious: Yes (Hospitalization, Other)
  Sender: FDA-Public Use
  Company Number: PHHY2012JP035136

PATIENT
  Age: 77 Year
  Sex: Male

DRUGS (3)
  1. CIPROFLOXACIN [Suspect]
  2. SENNARIDE [Suspect]
  3. ENALAPRIL MALEATE [Suspect]

REACTIONS (3)
  - PIGMENTATION DISORDER [None]
  - RASH [None]
  - SCHAMBERG'S DISEASE [None]
